FAERS Safety Report 8561032-5 (Version None)
Quarter: 2012Q3

REPORT INFORMATION
  Report Type: 
  Country: None (occurrence: None)
  Receive Date: 20120802
  Receipt Date: 20110914
  Transmission Date: 20120928
  Serious: No
  Sender: FDA-Public Use
  Company Number: US-BRISTOL-MYERS SQUIBB COMPANY-15986425

PATIENT
  Age: 37 Year
  Sex: Female

DRUGS (4)
  1. REYATAZ [Suspect]
     Indication: HIV INFECTION
     Route: 048
     Dates: start: 20081001
  2. TRUVADA [Suspect]
  3. ALBUTEROL [Suspect]
  4. RITONAVIR [Suspect]

REACTIONS (2)
  - NEPHROLITHIASIS [None]
  - CARDIAC MURMUR [None]
